FAERS Safety Report 8131962-7 (Version None)
Quarter: 2012Q1

REPORT INFORMATION
  Report Type: 
  Country: None (occurrence: None)
  Receive Date: 20120213
  Receipt Date: 20120206
  Transmission Date: 20120608
  Serious: Yes (Death, Life-Threatening, Hospitalization)
  Sender: FDA-Public Use
  Company Number: US-CELGENEUS-163-21880-12010680

PATIENT
  Sex: Male

DRUGS (8)
  1. REVLIMID [Suspect]
     Dosage: 10 MILLIGRAM
     Route: 048
     Dates: start: 20111213
  2. BACTRIM [Concomitant]
     Route: 065
  3. FILGRASTIM [Concomitant]
     Route: 065
  4. ATENOLOL [Concomitant]
     Route: 065
  5. PROBENECID [Concomitant]
     Route: 065
  6. AVODART [Concomitant]
     Route: 065
  7. GLIPIZIDE [Concomitant]
     Route: 065
  8. TAMSULOSIN HCL [Concomitant]
     Route: 065

REACTIONS (3)
  - WHITE BLOOD CELL COUNT DECREASED [None]
  - DEATH [None]
  - ARTERIOVENOUS MALFORMATION [None]
